FAERS Safety Report 22532841 (Version 1)
Quarter: 2023Q2

REPORT INFORMATION
  Report Type: Spontaneous
  Country: GB (occurrence: GB)
  Receive Date: 20230607
  Receipt Date: 20230607
  Transmission Date: 20230721
  Serious: Yes (Other)
  Sender: FDA-Public Use
  Company Number: GB-NOVPHSZ-PHHY2019GB055686

PATIENT
  Age: 56 Year
  Sex: Female
  Weight: 86 kg

DRUGS (8)
  1. DOCETAXEL [Suspect]
     Active Substance: DOCETAXEL
     Indication: Chemotherapy
     Dosage: 140 MG, Q3W
     Route: 042
     Dates: start: 20190221
  2. DOCETAXEL [Suspect]
     Active Substance: DOCETAXEL
     Dosage: 140 MG, UNK
     Route: 065
  3. DOCETAXEL [Suspect]
     Active Substance: DOCETAXEL
     Dosage: UNK (RESTARTED AND TOLERATED AT 1/4 RATE AND 1/2 RATE. CURRENTLY ON FULL RATE)
     Route: 042
  4. CARBOPLATIN [Suspect]
     Active Substance: CARBOPLATIN
     Indication: Product used for unknown indication
     Dosage: 790 MG, Q3W
     Route: 042
     Dates: start: 20190221
  5. SODIUM CHLORIDE [Suspect]
     Active Substance: SODIUM CHLORIDE
     Indication: Medication dilution
     Dosage: 1 OT, Q3W
     Route: 042
     Dates: start: 20190221
  6. SODIUM CHLORIDE [Suspect]
     Active Substance: SODIUM CHLORIDE
     Dosage: UNK (RESTARTED AND TOLERATED AT 1/4 RATE AND 1/2 RATE. CURRENTLY ON FULL RATE)
     Route: 042
  7. SODIUM CHLORIDE [Suspect]
     Active Substance: SODIUM CHLORIDE
     Dosage: UNK
     Route: 042
  8. PERTUZUMAB [Suspect]
     Active Substance: PERTUZUMAB
     Indication: Product used for unknown indication
     Dosage: 840 MG, Q3W
     Route: 042
     Dates: start: 20190220

REACTIONS (4)
  - Pain in extremity [Recovered/Resolved]
  - Dyspnoea [Recovering/Resolving]
  - Back pain [Recovered/Resolved]
  - Chest discomfort [Recovered/Resolved]

NARRATIVE: CASE EVENT DATE: 20190221
